FAERS Safety Report 24264690 (Version 1)
Quarter: 2024Q3

REPORT INFORMATION
  Report Type: Spontaneous
  Country: US (occurrence: None)
  Receive Date: 20240828
  Receipt Date: 20240828
  Transmission Date: 20241017
  Serious: Yes (Hospitalization, Disabling)
  Sender: Public
  Company Number: None

PATIENT
  Age: 35 Year
  Sex: Female
  Weight: 67.5 kg

DRUGS (3)
  1. CIMZIA [Suspect]
     Active Substance: CERTOLIZUMAB PEGOL
     Indication: Spondylitis
     Dosage: OTHER QUANTITY : 1 EACH;?OTHER FREQUENCY : Q 2WEEKS;?
     Route: 058
     Dates: start: 20231201, end: 20240424
  2. COPPER-CONTAINING INTRAUTERINE DEVICE (IUD) [Concomitant]
     Active Substance: COPPER
  3. DAILY MULTIVITAMIN [Concomitant]

REACTIONS (2)
  - Optic neuritis [None]
  - CSF oligoclonal band present [None]

NARRATIVE: CASE EVENT DATE: 20240430
